FAERS Safety Report 15539045 (Version 1)
Quarter: 2018Q4

REPORT INFORMATION
  Report Type: Spontaneous
  Country: TR (occurrence: TR)
  Receive Date: 20181022
  Receipt Date: 20181022
  Transmission Date: 20190205
  Serious: Yes (Death, Other)
  Sender: FDA-Public Use
  Company Number: PHHY2018TR134647

PATIENT
  Age: 26 Year
  Sex: Female

DRUGS (5)
  1. FURACIN [Concomitant]
     Active Substance: NITROFURAZONE
     Indication: PRODUCT USED FOR UNKNOWN INDICATION
     Route: 065
  2. MEROPENEM. [Suspect]
     Active Substance: MEROPENEM
     Indication: NECROTISING FASCIITIS
     Dosage: 1 G, BID
     Route: 065
  3. RIFOCIN [Concomitant]
     Active Substance: RIFAMYCIN
     Indication: PRODUCT USED FOR UNKNOWN INDICATION
     Route: 065
  4. VANCOMYCIN [Suspect]
     Active Substance: VANCOMYCIN
     Indication: NECROTISING FASCIITIS
     Dosage: 1 G, BID
     Route: 065
  5. HYDROGEN PEROXIDE. [Concomitant]
     Active Substance: HYDROGEN PEROXIDE
     Indication: PRODUCT USED FOR UNKNOWN INDICATION
     Route: 065

REACTIONS (5)
  - Therapy non-responder [Unknown]
  - Condition aggravated [Unknown]
  - Necrotising fasciitis [Unknown]
  - Cardiac arrest [Fatal]
  - Product use in unapproved indication [Unknown]
